FAERS Safety Report 6058696-7 (Version None)
Quarter: 2009Q1

REPORT INFORMATION
  Report Type: 
  Country: None (occurrence: None)
  Receive Date: 20090130
  Receipt Date: 20090115
  Transmission Date: 20090719
  Serious: Yes (Hospitalization)
  Sender: FDA-Public Use
  Company Number: FR-AVENTIS-200910264FR

PATIENT
  Age: 84 Year
  Sex: Female

DRUGS (11)
  1. LOVENOX [Suspect]
     Indication: PROPHYLAXIS
     Route: 058
     Dates: start: 20080211, end: 20080211
  2. CALCIPARINE [Suspect]
     Indication: PROPHYLAXIS
     Route: 058
     Dates: start: 20080212, end: 20080212
  3. ZOVIRAX [Suspect]
     Route: 042
     Dates: start: 20080208, end: 20080212
  4. BISOPROLOL [Suspect]
     Indication: ARRHYTHMIA
     Route: 048
     Dates: end: 20080211
  5. FLODIL                             /00646501/ [Suspect]
     Indication: ARRHYTHMIA
     Route: 048
     Dates: end: 20080211
  6. TRIMETAZIDINE [Suspect]
     Route: 048
     Dates: end: 20080211
  7. ATARAX [Suspect]
     Indication: AGITATION
     Route: 042
     Dates: start: 20080211
  8. AUGMENTIN '125' [Suspect]
     Route: 042
     Dates: start: 20080211, end: 20080213
  9. KASKADIL                           /01275601/ [Suspect]
     Indication: PROPHYLAXIS
     Route: 042
     Dates: start: 20080208
  10. PREVISCAN                          /00789001/ [Concomitant]
     Indication: ARRHYTHMIA
     Route: 048
     Dates: end: 20080211
  11. PREVISCAN                          /00789001/ [Concomitant]
     Dates: start: 20080212

REACTIONS (2)
  - RENAL FAILURE ACUTE [None]
  - THROMBOCYTOPENIA [None]
